FAERS Safety Report 6860240-9 (Version None)
Quarter: 2010Q3

REPORT INFORMATION
  Report Type: 
  Country: None (occurrence: None)
  Receive Date: 20100720
  Receipt Date: 20100707
  Transmission Date: 20110219
  Serious: Yes (Other)
  Sender: FDA-Public Use
  Company Number: PHHY2010RU45154

PATIENT
  Age: 70 Year
  Sex: Female

DRUGS (3)
  1. ACLASTA [Suspect]
     Indication: OSTEOPOROSIS
     Dosage: 5 MG I/V
     Route: 042
     Dates: start: 20090701
  2. NISE [Concomitant]
     Indication: PAIN
  3. MYDOCALM [Concomitant]
     Indication: MYALGIA
     Dosage: 150 MG, BID, FOR 7 DAYS

REACTIONS (12)
  - BONE PAIN [None]
  - EYE PAIN [None]
  - HEADACHE [None]
  - HYPOTENSION [None]
  - LACRIMATION INCREASED [None]
  - MYALGIA [None]
  - OCULAR HYPERAEMIA [None]
  - PHOTOPHOBIA [None]
  - PHOTOPSIA [None]
  - PYREXIA [None]
  - VISION BLURRED [None]
  - VISUAL ACUITY REDUCED [None]
